FAERS Safety Report 5994582-6 (Version None)
Quarter: 2008Q4

REPORT INFORMATION
  Report Type: 
  Country: None (occurrence: None)
  Receive Date: 20081212
  Receipt Date: 20080910
  Transmission Date: 20090506
  Serious: No
  Sender: FDA-Public Use
  Company Number: US-ABBOTT-08P-163-0475446-00

PATIENT
  Sex: Female
  Weight: 76.272 kg

DRUGS (4)
  1. HUMIRA [Suspect]
     Indication: ANKYLOSING SPONDYLITIS
     Route: 058
     Dates: start: 20080830, end: 20080830
  2. HUMIRA [Suspect]
     Indication: RHEUMATOID ARTHRITIS
     Route: 058
     Dates: start: 20080912
  3. ULTRAFIT [Concomitant]
     Indication: RHEUMATOID ARTHRITIS
     Route: 048
  4. ULTRAFIT [Concomitant]
     Indication: ANKYLOSING SPONDYLITIS

REACTIONS (4)
  - DISCOMFORT [None]
  - INJECTION SITE HAEMATOMA [None]
  - INJECTION SITE IRRITATION [None]
  - INJECTION SITE PAIN [None]
